FAERS Safety Report 15988469 (Version 1)
Quarter: 2019Q1

REPORT INFORMATION
  Report Type: Spontaneous
  Country: LV (occurrence: LV)
  Receive Date: 20190221
  Receipt Date: 20190221
  Transmission Date: 20190418
  Serious: Yes (Life-Threatening)
  Sender: FDA-Public Use
  Company Number: LV-ACCORD-108362

PATIENT
  Age: 61 Year
  Sex: Female

DRUGS (5)
  1. QUETIAPINE. [Suspect]
     Active Substance: QUETIAPINE
     Indication: SCHIZOPHRENIA
     Dosage: STRENGTH: 200 MG
     Route: 048
     Dates: end: 20180628
  2. HYDROCORTISONE. [Concomitant]
     Active Substance: HYDROCORTISONE
     Indication: HYPOPITUITARISM
     Dosage: STRENGTH: 10 MG
     Route: 048
  3. JENTADUETO [Concomitant]
     Active Substance: LINAGLIPTIN\METFORMIN HYDROCHLORIDE
     Indication: DIABETES MELLITUS
     Dosage: STRENGTH: 2.5 MG/850 MG
     Route: 048
  4. CONCOR [Concomitant]
     Active Substance: BISOPROLOL FUMARATE
     Indication: DIABETES MELLITUS
     Route: 048
  5. L-THYROXIN BERLIN-CHEMIE [Concomitant]
     Indication: HYPOTHYROIDISM
     Dosage: STRENGTH: 125 MICROGRAMS
     Route: 048

REACTIONS (2)
  - Pancytopenia [Recovering/Resolving]
  - Neutropenia [Recovering/Resolving]

NARRATIVE: CASE EVENT DATE: 20180622
